FAERS Safety Report 25056190 (Version 1)
Quarter: 2025Q1

REPORT INFORMATION
  Report Type: Spontaneous
  Country: US (occurrence: US)
  Receive Date: 20250309
  Receipt Date: 20250309
  Transmission Date: 20250409
  Serious: No
  Sender: SANOFI AVENTIS
  Company Number: US-SA-2025SA066566

PATIENT
  Age: 81 Year

DRUGS (1)
  1. JEVTANA [Suspect]
     Active Substance: CABAZITAXEL
     Indication: Neuroendocrine tumour
     Dosage: 41 MG, Q3W
     Route: 042

REACTIONS (1)
  - Off label use [Unknown]
